FAERS Safety Report 8129047-9 (Version None)
Quarter: 2012Q1

REPORT INFORMATION
  Report Type: 
  Country: None (occurrence: None)
  Receive Date: 20120210
  Receipt Date: 20110819
  Transmission Date: 20120608
  Serious: No
  Sender: FDA-Public Use
  Company Number: US-BRISTOL-MYERS SQUIBB COMPANY-15986474

PATIENT
  Age: 64 Year
  Sex: Female

DRUGS (1)
  1. ORENCIA [Suspect]
     Dosage: INF IN SEP,MISSED NOV,RECEIVED DEC,JAN,FEB,MARCH,APRIL,MISSED MAY AND JUNE AND STARTED AGAIN IN JULY
     Route: 042

REACTIONS (2)
  - NASOPHARYNGITIS [None]
  - DYSPEPSIA [None]
